FAERS Safety Report 12565831 (Version 2)
Quarter: 2016Q3

REPORT INFORMATION
  Report Type: Spontaneous
  Country: DE (occurrence: DE)
  Receive Date: 20160718
  Receipt Date: 20160828
  Transmission Date: 20161109
  Serious: Yes (Other)
  Sender: FDA-Public Use
  Company Number: PHHY2016DE096209

PATIENT
  Sex: Male
  Weight: 71 kg

DRUGS (1)
  1. RITALIN LA [Suspect]
     Active Substance: METHYLPHENIDATE HYDROCHLORIDE
     Indication: ATTENTION DEFICIT/HYPERACTIVITY DISORDER
     Dosage: 30 MG, (20 PLUS 10 MG) QD
     Route: 048
     Dates: start: 201309

REACTIONS (1)
  - Hodgkin^s disease stage II [Recovering/Resolving]

NARRATIVE: CASE EVENT DATE: 201604
